FAERS Safety Report 5414129-2 (Version None)
Quarter: 2007Q3

REPORT INFORMATION
  Report Type: 
  Country: None (occurrence: None)
  Receive Date: 20070814
  Receipt Date: 20070730
  Transmission Date: 20080115
  Serious: Yes (Other)
  Sender: FDA-Public Use
  Company Number: GB-PFIZER INC-2007066564

PATIENT
  Age: 27 Year
  Sex: Female

DRUGS (3)
  1. NELFINAVIR MESILATE [Suspect]
     Indication: PROPHYLAXIS
     Dosage: DAILY DOSE:1250MG
     Route: 048
     Dates: start: 20060118, end: 20060617
  2. COMBIVIR [Suspect]
     Indication: PROPHYLAXIS
     Dosage: DAILY DOSE:1250MG
     Route: 048
     Dates: start: 20060118, end: 20060617
  3. FERROUS SULFATE TAB [Concomitant]

REACTIONS (1)
  - STILLBIRTH [None]
